FAERS Safety Report 7631949-4 (Version None)
Quarter: 2011Q3

REPORT INFORMATION
  Report Type: 
  Country: None (occurrence: None)
  Receive Date: 20110725
  Receipt Date: 20110516
  Transmission Date: 20111222
  Serious: No
  Sender: FDA-Public Use
  Company Number: US-BRISTOL-MYERS SQUIBB COMPANY-15747785

PATIENT
  Age: 66 Year
  Sex: Male

DRUGS (2)
  1. PROPAFENONE HCL [Concomitant]
  2. COUMADIN [Suspect]
     Dosage: TAKEN 5MG MOST DAYS OF THE WEEK,2.5MG REST OF THE DAYS

REACTIONS (1)
  - PROTHROMBIN TIME PROLONGED [None]
